FAERS Safety Report 6833743-0 (Version None)
Quarter: 2010Q3

REPORT INFORMATION
  Report Type: 
  Country: None (occurrence: None)
  Receive Date: 20100712
  Receipt Date: 20070330
  Transmission Date: 20110219
  Serious: No
  Sender: FDA-Public Use
  Company Number: US-PFIZER INC-2007027351

PATIENT
  Sex: Female
  Weight: 52.16 kg

DRUGS (6)
  1. CHANTIX [Suspect]
     Indication: SMOKING CESSATION THERAPY
     Dates: start: 20070323
  2. NARDIL [Concomitant]
  3. HYZAAR [Concomitant]
     Indication: HYPERTENSION
  4. ACTONEL [Concomitant]
  5. VITAMINS [Concomitant]
  6. XANAX [Concomitant]

REACTIONS (5)
  - FATIGUE [None]
  - FEELING JITTERY [None]
  - HEADACHE [None]
  - MALAISE [None]
  - NERVOUSNESS [None]
